FAERS Safety Report 4691013-3 (Version None)
Quarter: 2005Q2

REPORT INFORMATION
  Report Type: 
  Country: None (occurrence: None)
  Receive Date: 20050610
  Receipt Date: 20050530
  Transmission Date: 20051028
  Serious: Yes (Other)
  Sender: FDA-Public Use
  Company Number: 2005082669

PATIENT
  Age: 26 Year
  Sex: Male

DRUGS (2)
  1. UNASYN [Suspect]
     Dosage: INTRAVENOUS
     Route: 042
  2. GASTROZEPIN (PIRENZEPIEN DIHYDROCHLORIDE) [Concomitant]

REACTIONS (1)
  - AGRANULOCYTOSIS [None]
